FAERS Safety Report 16767646 (Version 1)
Quarter: 2019Q3

REPORT INFORMATION
  Report Type: Spontaneous
  Country: JP (occurrence: JP)
  Receive Date: 20190903
  Receipt Date: 20190903
  Transmission Date: 20191005
  Serious: Yes (Other)
  Sender: FDA-Public Use
  Company Number: JP-SAKK-2019SA241208AA

PATIENT
  Sex: Male

DRUGS (1)
  1. AMARYL [Suspect]
     Active Substance: GLIMEPIRIDE
     Indication: DIABETES MELLITUS
     Dosage: UNK MG
     Route: 048

REACTIONS (1)
  - Enterocele [Unknown]
